FAERS Safety Report 5647007-4 (Version None)
Quarter: 2008Q1

REPORT INFORMATION
  Report Type: 
  Country: None (occurrence: None)
  Receive Date: 20080303
  Receipt Date: 20080220
  Transmission Date: 20080703
  Serious: Yes (Hospitalization, Disabling)
  Sender: FDA-Public Use
  Company Number: B0509774A

PATIENT
  Age: 46 Year
  Sex: Female

DRUGS (7)
  1. ARIXTRA [Suspect]
     Indication: DEEP VEIN THROMBOSIS
     Dosage: 15MG PER DAY
     Route: 058
     Dates: start: 20071115, end: 20071128
  2. BACTRIM [Concomitant]
     Dosage: 1TAB PER DAY
     Route: 048
  3. ENALAPRIL MALEATE [Concomitant]
     Dosage: 5MG PER DAY
     Route: 048
  4. CORTANCYL [Concomitant]
     Dosage: 5MG PER DAY
     Route: 048
  5. NEORAL [Concomitant]
     Dosage: 150MG PER DAY
     Route: 048
  6. OMEPRAZOLE [Concomitant]
     Dosage: 10MG PER DAY
     Route: 048
  7. OROCAL D3 [Concomitant]
     Route: 048

REACTIONS (7)
  - HAEMARTHROSIS [None]
  - HAEMORRHAGIC ANAEMIA [None]
  - INCORRECT DOSE ADMINISTERED [None]
  - JOINT SWELLING [None]
  - MUSCLE HAEMORRHAGE [None]
  - OVERDOSE [None]
  - PAIN IN EXTREMITY [None]
